FAERS Safety Report 12248792 (Version 1)
Quarter: 2016Q2

REPORT INFORMATION
  Report Type: Spontaneous
  Country: JP (occurrence: JP)
  Receive Date: 20160408
  Receipt Date: 20160408
  Transmission Date: 20160815
  Serious: Yes (Other)
  Sender: FDA-Public Use
  Company Number: JP-PFIZER INC-2016162655

PATIENT
  Age: 79 Year
  Sex: Female

DRUGS (11)
  1. PLAVIX [Concomitant]
     Active Substance: CLOPIDOGREL BISULFATE
     Dosage: 75 MG ONCE DAILY BEFORE BREAKFAST
     Route: 048
     Dates: start: 20151221
  2. CILOSTAZOL. [Concomitant]
     Active Substance: CILOSTAZOL
     Dosage: 100 MG TWICE DAILY JUST BEFORE BREAKFAST AND DINNER
     Route: 048
     Dates: start: 20151221
  3. VFEND [Suspect]
     Active Substance: VORICONAZOLE
     Indication: ASPERGILLOMA
     Dosage: 300 MG, DAILY
     Route: 048
     Dates: start: 20151221, end: 20160314
  4. CRESTOR [Concomitant]
     Active Substance: ROSUVASTATIN CALCIUM
     Dosage: 2.5 MG ONCE DAILY BEFORE BREAKFAST
     Route: 048
     Dates: start: 20151221
  5. ARICEPT [Concomitant]
     Active Substance: DONEPEZIL HYDROCHLORIDE
     Dosage: 5 MG ONCE DAILY BEFORE BREAKFAST
     Route: 048
     Dates: start: 20151221
  6. RABEPRAZOLE SODIUM. [Concomitant]
     Active Substance: RABEPRAZOLE SODIUM
     Dosage: 10 MG ONCE DAILY JUST BEFORE BREAKFAST
     Route: 048
     Dates: start: 20151221
  7. TANATRIL [Concomitant]
     Active Substance: IMIDAPRIL
     Dosage: 5 MG TWICE DAILY JUST BEFORE BREAKFAST AND DINNER
     Route: 048
     Dates: start: 20151221
  8. SPIRONOLACTONE. [Concomitant]
     Active Substance: SPIRONOLACTONE
     Dosage: 25 MG ONCE DAILY JUST BEFORE BREAKFAST
     Route: 048
     Dates: start: 20151221
  9. GLACTIV [Concomitant]
     Active Substance: SITAGLIPTIN
     Dosage: 50 MG ONCE DAILY BEFORE BREAKFAST
     Route: 048
     Dates: start: 20151221
  10. FUROSEMIDE. [Concomitant]
     Active Substance: FUROSEMIDE
     Dosage: 10 MG ONCE DAILY BEFORE BREAKFAST
     Route: 048
     Dates: start: 20151221
  11. AMLODIPINE [Concomitant]
     Active Substance: AMLODIPINE BESYLATE
     Dosage: 1 TABLET ONCE DAILY JUST BEFORE BREAKFAST
     Route: 048
     Dates: start: 20151221

REACTIONS (3)
  - Cardiac failure [Unknown]
  - Condition aggravated [Unknown]
  - Liver function test abnormal [Unknown]

NARRATIVE: CASE EVENT DATE: 20160314
